FAERS Safety Report 15878450 (Version 2)
Quarter: 2019Q1

REPORT INFORMATION
  Report Type: Spontaneous
  Country: DE (occurrence: DE)
  Receive Date: 20190128
  Receipt Date: 20190325
  Transmission Date: 20190417
  Serious: Yes (Other)
  Sender: FDA-Public Use
  Company Number: DE-SAKK-2019SA020727AA

PATIENT
  Age: 32 Year
  Sex: Female

DRUGS (3)
  1. LEMTRADA [Suspect]
     Active Substance: ALEMTUZUMAB
     Dosage: UNK
     Route: 041
     Dates: start: 20160320, end: 20160324
  2. L-THYROXINE [LEVOTHYROXINE] [Concomitant]
  3. LEMTRADA [Suspect]
     Active Substance: ALEMTUZUMAB
     Indication: RELAPSING-REMITTING MULTIPLE SCLEROSIS
     Dosage: UNK UNK, UNK
     Route: 041
     Dates: start: 20170323, end: 20170325

REACTIONS (8)
  - Adnexa uteri pain [Unknown]
  - Uterine disorder [Unknown]
  - Gait disturbance [Unknown]
  - Peritoneal disorder [Unknown]
  - Pseudomyxoma peritonei [Unknown]
  - Peritonitis [Unknown]
  - Peritoneal mesothelial hyperplasia [Unknown]
  - Inflammation [Unknown]

NARRATIVE: CASE EVENT DATE: 20180920
